FAERS Safety Report 19406209 (Version 1)
Quarter: 2021Q2

REPORT INFORMATION
  Report Type: Spontaneous
  Country: DE (occurrence: DE)
  Receive Date: 20210611
  Receipt Date: 20210611
  Transmission Date: 20210717
  Serious: Yes (Hospitalization)
  Sender: FDA-Public Use
  Company Number: DE-TEVA-2021-DE-1920349

PATIENT
  Age: 57 Year
  Sex: Female

DRUGS (17)
  1. L?THYROXIN 100 [Concomitant]
     Active Substance: LEVOTHYROXINE SODIUM
     Dosage: 1.5 DOSAGE FORMS DAILY; 100 UG, 1.5?0?0?0
     Route: 048
  2. TARGIN 10MG/5MG [Concomitant]
     Active Substance: NALOXONE HYDROCHLORIDE\OXYCODONE HYDROCHLORIDE
     Dosage: 2 DOSAGE FORMS DAILY; 5|10 MG, 1?0?1?0
     Route: 048
  3. XIPAMID 10?1A PHARMA [Suspect]
     Active Substance: XIPAMIDE
     Dosage: 10 MILLIGRAM DAILY; 1?0?0?0
     Route: 048
  4. LANTUS 1000E. 100E./ML [Concomitant]
     Dosage: 16 DOSAGE FORMS DAILY; 16 IE, 0?0?16?0
     Route: 058
  5. NEUROTRAT S FORTE [Concomitant]
     Dosage: 200 MILLIGRAM DAILY;  1?0?1?0
     Route: 048
  6. SPIRONOLACTON [Suspect]
     Active Substance: SPIRONOLACTONE
     Dosage: 4 DOSAGE FORMS DAILY; 50 MG, 2?2?0?0
     Route: 048
  7. HEPA?MERZ [Concomitant]
     Dosage: 3 DOSAGE FORMS DAILY; 1?1?1?0
     Route: 048
  8. CALCIUM 500 DURA BRAUSETABLETTEN [Concomitant]
     Dosage: 2 DOSAGE FORMS DAILY; 2?0?0?0
     Route: 048
  9. BISOPROLOL [Concomitant]
     Active Substance: BISOPROLOL
     Dosage: 2.5 MILLIGRAM DAILY;  0?0?1?0
     Route: 048
  10. VIGANTOLETTEN 1000I.E. [Concomitant]
     Active Substance: CHOLECALCIFEROL
     Dosage: 1000 IU (INTERNATIONAL UNIT) DAILY; 1?0?0?0
     Route: 048
  11. REKAWAN RETARD 600MG [Concomitant]
     Dosage: 9 DOSAGE FORMS DAILY; 600 MG, 3?3?3?0
     Route: 048
  12. FUROSEMID [Suspect]
     Active Substance: FUROSEMIDE
     Dosage: 40 MG, 2?2?0.5?0
     Route: 048
  13. HUMALOG 1000E. 100E./ML [Concomitant]
     Dosage: ACCORDING TO BZ IE, ACCORDING TO YOUR OWN SCHEME
     Route: 058
  14. LACTULOSE AL [Concomitant]
     Active Substance: LACTULOSE
     Dosage: IF NECESSARY
  15. PANTOPRAZOL [Concomitant]
     Active Substance: PANTOPRAZOLE SODIUM
     Dosage: 40 MILLIGRAM DAILY;  1?0?0?0
     Route: 048
  16. APIXABAN [Concomitant]
     Active Substance: APIXABAN
     Dosage: 5 MILLIGRAM DAILY;  1?0?1?0
     Route: 048
  17. METAMIZOL [Concomitant]
     Active Substance: METAMIZOLE SODIUM
     Dosage: 6 DOSAGE FORMS DAILY; 500 MG, 2?2?2?0
     Route: 048

REACTIONS (3)
  - Oedema peripheral [Unknown]
  - Weight increased [Unknown]
  - Pain [Unknown]
